FAERS Safety Report 21289079 (Version 1)
Quarter: 2022Q3

REPORT INFORMATION
  Report Type: Spontaneous
  Country: US (occurrence: None)
  Receive Date: 20220902
  Receipt Date: 20220902
  Transmission Date: 20221027
  Serious: Yes (Death)
  Sender: FDA-Public Use
  Company Number: None

PATIENT
  Age: 90 Year
  Sex: Female
  Weight: 87.09 kg

DRUGS (27)
  1. CAPECITABINE [Suspect]
     Active Substance: CAPECITABINE
     Indication: Colon cancer
     Dosage: 1000MG TWICE DAILY ORAL - 14 DAYS ON, 7 D OFF
     Route: 048
     Dates: start: 20220817, end: 20220902
  2. CAPECITABINE [Suspect]
     Active Substance: CAPECITABINE
     Indication: Colon cancer
     Dosage: 300 MG TWICE DAILY ORAL - 14 DAYS ON, 7 D OFF
     Route: 048
     Dates: start: 20220817, end: 20220902
  3. ACETAMINOPHEN [Concomitant]
     Active Substance: ACETAMINOPHEN
  4. ALBUTEROL [Concomitant]
     Active Substance: ALBUTEROL
  5. ALLOPURINOL [Concomitant]
     Active Substance: ALLOPURINOL
  6. AMLODIPINE [Concomitant]
     Active Substance: AMLODIPINE BESYLATE
  7. ASPIRIN [Concomitant]
     Active Substance: ASPIRIN
  8. CALCIUM\VITAMIN D [Concomitant]
     Active Substance: CALCIUM\VITAMIN D
  9. COZAAR [Concomitant]
     Active Substance: LOSARTAN POTASSIUM
  10. CRESTOR [Concomitant]
     Active Substance: ROSUVASTATIN CALCIUM
  11. EFFEXOR XR [Concomitant]
     Active Substance: VENLAFAXINE HYDROCHLORIDE
  12. FUROSEMIDE [Concomitant]
     Active Substance: FUROSEMIDE
  13. ISOSORBIDE [Concomitant]
     Active Substance: ISOSORBIDE
  14. Mononitrate [Concomitant]
  15. LACTULOSE [Concomitant]
     Active Substance: LACTULOSE
  16. MAGNESIUM OXIDE [Concomitant]
     Active Substance: MAGNESIUM OXIDE
  17. MELATONIN [Concomitant]
     Active Substance: MELATONIN
  18. METOPROLOL [Concomitant]
     Active Substance: METOPROLOL
  19. MIRALAX [Concomitant]
     Active Substance: POLYETHYLENE GLYCOL 3350
  20. Modema COVID-19 vaccine [Concomitant]
  21. NITROSTAT [Concomitant]
     Active Substance: NITROGLYCERIN
  22. PEPCID [Concomitant]
     Active Substance: FAMOTIDINE
  23. PLAVIX [Concomitant]
     Active Substance: CLOPIDOGREL BISULFATE
  24. SENNA [Concomitant]
     Active Substance: SENNA LEAF\SENNOSIDES\SENNOSIDES A AND B
  25. SINGULAIR [Concomitant]
     Active Substance: MONTELUKAST SODIUM
  26. SYMBICORT [Concomitant]
     Active Substance: BUDESONIDE\FORMOTEROL FUMARATE DIHYDRATE
  27. TOUJEO [Concomitant]
     Active Substance: INSULIN GLARGINE

REACTIONS (1)
  - Death [None]

NARRATIVE: CASE EVENT DATE: 20220902
